FAERS Safety Report 8441458-0 (Version None)
Quarter: 2012Q2

REPORT INFORMATION
  Report Type: 
  Country: None (occurrence: None)
  Receive Date: 20120615
  Receipt Date: 20120611
  Transmission Date: 20120825
  Serious: Yes (Life-Threatening, Hospitalization, Other)
  Sender: FDA-Public Use
  Company Number: US-BRISTOL-MYERS SQUIBB COMPANY-16680282

PATIENT
  Age: 65 Year
  Sex: Male

DRUGS (3)
  1. APIDRA [Suspect]
     Indication: TYPE 2 DIABETES MELLITUS
     Dosage: 100IU/ML SUBCUTANEOUS, INJECTION,
     Route: 058
     Dates: start: 20110101
  2. LANTUS [Suspect]
     Indication: TYPE 2 DIABETES MELLITUS
     Dosage: 100IU/ML PARENTERAL, INJECTION, SOLUTION
     Route: 058
     Dates: start: 20110101, end: 20120301
  3. GLUCOPHAGE [Suspect]
     Indication: TYPE 2 DIABETES MELLITUS
     Route: 065

REACTIONS (6)
  - MALAISE [None]
  - WEIGHT DECREASED [None]
  - FATIGUE [None]
  - CHEST DISCOMFORT [None]
  - STREPTOCOCCAL SEPSIS [None]
  - BLOOD GLUCOSE INCREASED [None]
